FAERS Safety Report 7323478-2 (Version None)
Quarter: 2011Q1

REPORT INFORMATION
  Report Type: 
  Country: None (occurrence: None)
  Receive Date: 20110301
  Receipt Date: 20110222
  Transmission Date: 20110831
  Serious: Yes (Other)
  Sender: FDA-Public Use
  Company Number: JP-ROCHE-727377

PATIENT
  Sex: Male
  Weight: 50 kg

DRUGS (28)
  1. TOCILIZUMAB [Suspect]
     Route: 041
     Dates: start: 20090127, end: 20090127
  2. TOCILIZUMAB [Suspect]
     Route: 041
     Dates: start: 20090714, end: 20090714
  3. TOCILIZUMAB [Suspect]
     Route: 041
     Dates: start: 20100601
  4. SELBEX [Concomitant]
     Dosage: DOSE FORM: MINUTE GRAIN
     Route: 048
  5. LAMISIL [Concomitant]
     Dosage: PROPER QUANTITY, DOSE FORM: OINTMENT AND CREAM
     Route: 062
  6. INFLUENZA VACCINE [Concomitant]
     Dosage: BIKEN HA(INFLUENZA HA VACCINE)
     Route: 058
     Dates: start: 20081104, end: 20081104
  7. TOCILIZUMAB [Suspect]
     Route: 041
     Dates: start: 20100202, end: 20100202
  8. URSO 250 [Concomitant]
     Route: 048
  9. TOCILIZUMAB [Suspect]
     Route: 041
     Dates: start: 20081216, end: 20081216
  10. OMEPRAL [Concomitant]
     Route: 048
  11. TOCILIZUMAB [Suspect]
     Route: 041
     Dates: start: 20080812, end: 20080812
  12. TOCILIZUMAB [Suspect]
     Route: 041
     Dates: start: 20080916, end: 20080916
  13. TOCILIZUMAB [Suspect]
     Route: 041
     Dates: start: 20090602, end: 20090602
  14. PREDONINE [Concomitant]
     Route: 048
  15. LOXONIN [Concomitant]
     Route: 048
  16. TOCILIZUMAB [Suspect]
     Route: 041
     Dates: start: 20081104, end: 20081104
  17. TOCILIZUMAB [Suspect]
     Route: 041
     Dates: start: 20090421, end: 20090421
  18. PREDNISOLONE [Concomitant]
     Route: 048
  19. TOCILIZUMAB [Suspect]
     Indication: RHEUMATOID ARTHRITIS
     Route: 041
     Dates: start: 20080701, end: 20080701
  20. TOCILIZUMAB [Suspect]
     Route: 041
     Dates: start: 20091222, end: 20091222
  21. TOCILIZUMAB [Suspect]
     Route: 041
     Dates: start: 20100427, end: 20100427
  22. VITANEURIN [Concomitant]
     Route: 048
  23. BUFFERIN [Concomitant]
     Route: 048
  24. TOCILIZUMAB [Suspect]
     Route: 041
     Dates: start: 20090310, end: 20090310
  25. TOCILIZUMAB [Suspect]
     Route: 041
     Dates: start: 20090825, end: 20090825
  26. TOCILIZUMAB [Suspect]
     Route: 041
     Dates: start: 20091006, end: 20091006
  27. TOCILIZUMAB [Suspect]
     Route: 041
     Dates: start: 20091117, end: 20091117
  28. TOCILIZUMAB [Suspect]
     Route: 041
     Dates: start: 20100316, end: 20100316

REACTIONS (1)
  - CEREBRAL INFARCTION [None]
